FAERS Safety Report 5848502-5 (Version None)
Quarter: 2008Q3

REPORT INFORMATION
  Report Type: 
  Country: None (occurrence: None)
  Receive Date: 20080815
  Receipt Date: 20080815
  Transmission Date: 20090109
  Serious: Yes (Hospitalization)
  Sender: FDA-Public Use
  Company Number: None

PATIENT
  Sex: Female
  Weight: 64.1 kg

DRUGS (2)
  1. CARBOPLATIN [Suspect]
     Dosage: 470 MG
  2. TAXOL [Suspect]
     Dosage: 281 MG

REACTIONS (7)
  - CYSTOSCOPY ABNORMAL [None]
  - DELIRIUM [None]
  - HAEMATURIA [None]
  - NAUSEA [None]
  - PYREXIA [None]
  - URINARY TRACT INFECTION [None]
  - VOMITING [None]
